FAERS Safety Report 26114797 (Version 1)
Quarter: 2025Q4

REPORT INFORMATION
  Report Type: Spontaneous
  Country: EU (occurrence: EU)
  Receive Date: 20251203
  Receipt Date: 20251203
  Transmission Date: 20260117
  Serious: Yes (Hospitalization, Other)
  Sender: GLAXOSMITHKLINE
  Company Number: None

PATIENT
  Sex: Female

DRUGS (11)
  1. LAMOTRIGINE [Suspect]
     Active Substance: LAMOTRIGINE
     Indication: Product used for unknown indication
     Dosage: UNK
     Route: 065
  2. LEVETIRACETAM [Suspect]
     Active Substance: LEVETIRACETAM
     Indication: Tonic convulsion
     Dosage: UNK
     Route: 065
  3. LEVETIRACETAM [Suspect]
     Active Substance: LEVETIRACETAM
     Indication: Myoclonic epilepsy
  4. VALPROATE [Suspect]
     Active Substance: VALPROIC ACID
     Indication: Tonic convulsion
     Dosage: UNK
     Route: 065
  5. VALPROATE [Suspect]
     Active Substance: VALPROIC ACID
     Indication: Myoclonic epilepsy
  6. CLOBAZAM [Suspect]
     Active Substance: CLOBAZAM
     Indication: Tonic convulsion
     Dosage: UNK
     Route: 065
  7. CLOBAZAM [Suspect]
     Active Substance: CLOBAZAM
     Indication: Myoclonic epilepsy
  8. SULTHIAME [Suspect]
     Active Substance: SULTHIAME
     Indication: Tonic convulsion
     Dosage: UNK
     Route: 065
  9. SULTHIAME [Suspect]
     Active Substance: SULTHIAME
     Indication: Myoclonic epilepsy
  10. ETHOSUXIMIDE [Suspect]
     Active Substance: ETHOSUXIMIDE
     Indication: Tonic convulsion
     Dosage: UNK
     Route: 065
  11. ETHOSUXIMIDE [Suspect]
     Active Substance: ETHOSUXIMIDE
     Indication: Myoclonic epilepsy

REACTIONS (12)
  - Seizure cluster [Unknown]
  - Seizure [Unknown]
  - Withdrawal syndrome [Unknown]
  - Drug ineffective [Unknown]
  - Tremor [Unknown]
  - Decreased appetite [Unknown]
  - Clumsiness [Unknown]
  - Fall [Unknown]
  - Food interaction [Unknown]
  - Anticonvulsant drug level decreased [Unknown]
  - Anticonvulsant drug level below therapeutic [Unknown]
  - Off label use [Unknown]
